FAERS Safety Report 8532746-8 (Version None)
Quarter: 2012Q3

REPORT INFORMATION
  Report Type: 
  Country: None (occurrence: None)
  Receive Date: 20120724
  Receipt Date: 20120719
  Transmission Date: 20120928
  Serious: Yes (Hospitalization)
  Sender: FDA-Public Use
  Company Number: PHHY2011CA52549

PATIENT
  Sex: Male

DRUGS (2)
  1. EXJADE [Suspect]
     Indication: MYELODYSPLASTIC SYNDROME
     Dosage: 2000 MG,DAILY
     Route: 048
     Dates: end: 20110601
  2. EXJADE [Suspect]
     Dosage: 2500 MG, QD
     Route: 048

REACTIONS (2)
  - CARDIAC DISORDER [None]
  - SERUM FERRITIN INCREASED [None]
